FAERS Safety Report 5787086-7 (Version None)
Quarter: 2008Q2

REPORT INFORMATION
  Report Type: 
  Country: None (occurrence: None)
  Receive Date: 20080623
  Receipt Date: 20080623
  Transmission Date: 20081010
  Serious: Yes (Other)
  Sender: FDA-Public Use
  Company Number: None

PATIENT
  Sex: Female
  Weight: 65.7716 kg

DRUGS (2)
  1. SINGULAIR [Suspect]
     Indication: ASTHMA
     Dates: start: 20080527, end: 20080617
  2. SINGULAIR [Suspect]
     Indication: MULTIPLE ALLERGIES
     Dates: start: 20080527, end: 20080617

REACTIONS (1)
  - NIGHTMARE [None]
